FAERS Safety Report 8960268 (Version 1)
Quarter: 2012Q4

REPORT INFORMATION
  Report Type: 
  Country: FR (occurrence: FR)
  Receive Date: 20121212
  Receipt Date: 20121212
  Transmission Date: 20130627
  Serious: Yes (Other)
  Sender: FDA-Public Use
  Company Number: FR-PFIZER INC-2012308793

PATIENT
  Age: 7 None
  Sex: Male

DRUGS (2)
  1. LYRICA [Suspect]
     Indication: NEURALGIA
     Dosage: 300 mg, 2x/day
     Dates: start: 201210, end: 201211
  2. LYRICA [Suspect]
     Dosage: 150 mg, 2x/day
     Dates: start: 201211

REACTIONS (3)
  - Renal disorder [Unknown]
  - Nausea [Unknown]
  - Diarrhoea [Unknown]
